FAERS Safety Report 8145968-5 (Version None)
Quarter: 2012Q1

REPORT INFORMATION
  Report Type: 
  Country: None (occurrence: None)
  Receive Date: 20120217
  Receipt Date: 20110512
  Transmission Date: 20120608
  Serious: No
  Sender: FDA-Public Use
  Company Number: US-ABBOTT-11P-163-0725778-00

PATIENT
  Sex: Male
  Weight: 95.794 kg

DRUGS (7)
  1. SIMCOR [Suspect]
     Indication: BLOOD CHOLESTEROL INCREASED
     Dosage: 500/40 MG
     Dates: start: 20110503
  2. NOVOLOG [Concomitant]
     Indication: DIABETES MELLITUS
  3. GLIPIZIDE [Concomitant]
     Indication: DIABETES MELLITUS
  4. METOPROLOL TARTRATE [Concomitant]
     Indication: HYPERTENSION
  5. PROZAC [Concomitant]
     Indication: DEPRESSION
  6. LANTUS [Concomitant]
     Indication: DIABETES MELLITUS
  7. COUMADIN [Concomitant]
     Indication: THROMBOSIS PROPHYLAXIS

REACTIONS (3)
  - FATIGUE [None]
  - BLOOD GLUCOSE INCREASED [None]
  - DIZZINESS [None]
